FAERS Safety Report 20769874 (Version 1)
Quarter: 2022Q2

REPORT INFORMATION
  Report Type: Spontaneous
  Country: BR (occurrence: None)
  Receive Date: 20220429
  Receipt Date: 20220429
  Transmission Date: 20220721
  Serious: Yes (Hospitalization, Other)
  Sender: FDA-Public Use
  Company Number: 2022A160326

PATIENT
  Age: 25809 Day
  Sex: Female
  Weight: 100 kg

DRUGS (1)
  1. TAGRISSO [Suspect]
     Active Substance: OSIMERTINIB
     Indication: Lung neoplasm malignant
     Dosage: 80.0MG UNKNOWN
     Route: 048
     Dates: start: 20220106, end: 2022

REACTIONS (5)
  - Arrhythmia [Recovering/Resolving]
  - Pulmonary embolism [Recovering/Resolving]
  - Electrocardiogram QT prolonged [Recovering/Resolving]
  - Lung disorder [Recovering/Resolving]
  - Paronychia [Recovering/Resolving]

NARRATIVE: CASE EVENT DATE: 20220417
